FAERS Safety Report 8424006-0 (Version None)
Quarter: 2012Q2

REPORT INFORMATION
  Report Type: 
  Country: None (occurrence: None)
  Receive Date: 20120608
  Receipt Date: 20120604
  Transmission Date: 20120825
  Serious: Yes (Congenital Anomaly)
  Sender: FDA-Public Use
  Company Number: GXKR2012DE001927

PATIENT
  Sex: Male
  Weight: 3.24 kg

DRUGS (2)
  1. FEMIBION [Concomitant]
     Dosage: MATERNAL DOSE: 0.8 MG/DAY
     Route: 064
  2. CLOZAPINE [Suspect]
     Dosage: MATERNAL DOSE: 50 MG/DAY
     Route: 064

REACTIONS (2)
  - VENTRICULAR SEPTAL DEFECT [None]
  - FOETAL EXPOSURE DURING PREGNANCY [None]
